FAERS Safety Report 25260283 (Version 3)
Quarter: 2025Q2

REPORT INFORMATION
  Report Type: Spontaneous
  Country: US (occurrence: US)
  Receive Date: 20250501
  Receipt Date: 20250515
  Transmission Date: 20250716
  Serious: Yes (Other)
  Sender: CHATTEM
  Company Number: US-OPELLA-2025OHG012378

PATIENT
  Age: 2 Year
  Sex: Female

DRUGS (1)
  1. DULCOLAX STOOL SOFTENER [Suspect]
     Active Substance: DOCUSATE SODIUM
     Indication: Product used for unknown indication
     Route: 048
     Dates: start: 20250421

REACTIONS (5)
  - Choking [Recovered/Resolved]
  - Crying [Recovered/Resolved]
  - Screaming [Recovered/Resolved]
  - Accidental exposure to product by child [Unknown]
  - Product taste abnormal [Unknown]

NARRATIVE: CASE EVENT DATE: 20250421
